FAERS Safety Report 13377422 (Version 1)
Quarter: 2017Q1

REPORT INFORMATION
  Report Type: Spontaneous
  Country: BR (occurrence: BR)
  Receive Date: 20170328
  Receipt Date: 20170328
  Transmission Date: 20170429
  Serious: Yes (Death, Other)
  Sender: FDA-Public Use
  Company Number: BR-GLAXOSMITHKLINE-BR2017GSK034946

PATIENT
  Sex: Female

DRUGS (5)
  1. ACTEMRA [Suspect]
     Active Substance: TOCILIZUMAB
     Indication: RHEUMATOID ARTHRITIS
     Dosage: UNK
     Route: 065
     Dates: start: 20161019
  2. VOLTAREN [Suspect]
     Active Substance: DICLOFENAC SODIUM
     Indication: PRODUCT USED FOR UNKNOWN INDICATION
  3. GLIFAGE [Concomitant]
     Active Substance: METFORMIN HYDROCHLORIDE
  4. ACTEMRA [Suspect]
     Active Substance: TOCILIZUMAB
     Dosage: UNK
     Dates: start: 20161212
  5. CAPTOPRIL. [Concomitant]
     Active Substance: CAPTOPRIL

REACTIONS (7)
  - Chest pain [Fatal]
  - Pain in extremity [Fatal]
  - Cardiac arrest [Fatal]
  - Hypertension [Fatal]
  - Drug hypersensitivity [Unknown]
  - Pulmonary thrombosis [Fatal]
  - Dyspnoea [Fatal]
